FAERS Safety Report 19808636 (Version 1)
Quarter: 2021Q3

REPORT INFORMATION
  Report Type: Spontaneous
  Country: US (occurrence: US)
  Receive Date: 20210909
  Receipt Date: 20210909
  Transmission Date: 20211014
  Serious: Yes (Other)
  Sender: FDA-Public Use
  Company Number: US-RECKITT BENCKISER HEALTHCARE INT LIMITED-RB-94512-2021

PATIENT
  Age: 32 Year
  Sex: Female

DRUGS (2)
  1. SALICYLIC ACID. [Suspect]
     Active Substance: SALICYLIC ACID
     Indication: SKIN LESION
  2. SALICYLIC ACID. [Suspect]
     Active Substance: SALICYLIC ACID
     Indication: SKIN PAPILLOMA
     Dosage: BID; FOR 4 WEEKS
     Route: 061

REACTIONS (10)
  - Parakeratosis [Unknown]
  - Epidermal necrosis [Unknown]
  - Necrolytic acral erythema [Unknown]
  - Skin plaque [Unknown]
  - Chronic papillomatous dermatitis [Unknown]
  - Condition aggravated [Recovered/Resolved]
  - Dermatitis psoriasiform [Unknown]
  - Eosinophil count [Unknown]
  - Drug ineffective [Recovered/Resolved]
  - Hepatitis C [Unknown]
